FAERS Safety Report 8338442-4 (Version None)
Quarter: 2012Q1

REPORT INFORMATION
  Report Type: 
  Country: None (occurrence: None)
  Receive Date: 20120329
  Receipt Date: 20090626
  Transmission Date: 20120608
  Serious: Yes (Other)
  Sender: FDA-Public Use
  Company Number: PHEH2009US05324

PATIENT
  Sex: Male

DRUGS (5)
  1. LIPITOR [Concomitant]
  2. SYNTHROID [Concomitant]
  3. EXELON [Suspect]
     Indication: COGNITIVE DISORDER
     Dosage: 2 PATCHES, QD, TRANSDERMAL : 4.6 MG, QD, TRANSDERMAL
     Route: 062
     Dates: start: 20090413, end: 20090511
  4. EXELON [Suspect]
     Indication: COGNITIVE DISORDER
     Dosage: 2 PATCHES, QD, TRANSDERMAL : 4.6 MG, QD, TRANSDERMAL
     Route: 062
     Dates: start: 20090511
  5. PLAVIX [Concomitant]

REACTIONS (3)
  - HEART RATE DECREASED [None]
  - DEPRESSED MOOD [None]
  - NAUSEA [None]
